FAERS Safety Report 25979639 (Version 1)
Quarter: 2025Q4

REPORT INFORMATION
  Report Type: Spontaneous
  Country: US (occurrence: None)
  Receive Date: 20251030
  Receipt Date: 20251030
  Transmission Date: 20260118
  Serious: Yes (Other)
  Sender: FDA-CTU
  Company Number: None

PATIENT
  Age: 49 Year
  Sex: Female

DRUGS (1)
  1. RINVOQ [Suspect]
     Active Substance: UPADACITINIB
     Indication: Crohn^s disease
     Dosage: FREQUENCY : DAILY;?

REACTIONS (7)
  - Nausea [None]
  - Headache [None]
  - Rash [None]
  - Weight increased [None]
  - Swelling face [None]
  - Skin swelling [None]
  - Chest pain [None]
